FAERS Safety Report 16600740 (Version 1)
Quarter: 2019Q3

REPORT INFORMATION
  Report Type: Spontaneous
  Country: FR (occurrence: FR)
  Receive Date: 20190719
  Receipt Date: 20190719
  Transmission Date: 20191004
  Serious: Yes (Death, Hospitalization)
  Sender: FDA-Public Use
  Company Number: FR-TEVA-2019-FR-1078063

PATIENT
  Age: 71 Year
  Sex: Female
  Weight: 110 kg

DRUGS (11)
  1. DIAMOX 500 MG, LYOPHILISAT ET SOLUTION POUR USAGE PARENT?RAL [Concomitant]
     Indication: INTRACRANIAL PRESSURE INCREASED
     Route: 042
     Dates: start: 20190511, end: 20190511
  2. ESMERON [Concomitant]
     Active Substance: ROCURONIUM BROMIDE
     Indication: NEUROMUSCULAR BLOCKING THERAPY
     Route: 042
     Dates: start: 20190512, end: 20190512
  3. SOLUMEDROL 120 MG/2 ML, LYOPHILISAT ET SOLUTION POUR USAGE PARENT?RAL [Concomitant]
     Indication: CENTRAL NERVOUS SYSTEM LYMPHOMA
     Route: 042
     Dates: start: 20190511, end: 20190512
  4. ZOPHREN 8 MG/4 ML, SOLUTION INJECTABLE EN SERINGUE PR?-REMPLIE [Concomitant]
     Active Substance: ONDANSETRON
     Indication: PROPHYLAXIS OF NAUSEA AND VOMITING
     Route: 042
     Dates: start: 20190512
  5. METHOTREXATE. [Suspect]
     Active Substance: METHOTREXATE
     Indication: CENTRAL NERVOUS SYSTEM LYMPHOMA
     Dosage: 7 GRAM
     Route: 041
     Dates: start: 20190512, end: 20190512
  6. KETAMINE [Concomitant]
     Active Substance: KETAMINE
     Indication: SEDATION
     Dates: start: 20190512, end: 20190512
  7. VINCRISTINE (SULFATE DE) [Concomitant]
     Active Substance: VINCRISTINE SULFATE
     Indication: CENTRAL NERVOUS SYSTEM LYMPHOMA
     Route: 042
     Dates: start: 20190512, end: 20190512
  8. MAGNESIUM [Concomitant]
     Active Substance: MAGNESIUM
     Dosage: UNKNOWN
     Route: 042
     Dates: start: 20190512, end: 20190512
  9. MIDAZOLAM [Concomitant]
     Active Substance: MIDAZOLAM HYDROCHLORIDE
     Indication: SEDATION
     Dosage: INCONNUE
     Route: 041
     Dates: start: 20190512, end: 20190514
  10. FENTANYL. [Concomitant]
     Active Substance: FENTANYL
     Indication: SEDATION
     Dosage: UNKNOWN
     Route: 041
     Dates: start: 20190512, end: 20190514
  11. RITUXIMAB ((MAMMIFERE/HAMSTER/CELLULES CHO)) [Concomitant]
     Active Substance: RITUXIMAB
     Indication: CENTRAL NERVOUS SYSTEM LYMPHOMA
     Route: 041
     Dates: start: 20190511, end: 20190511

REACTIONS (3)
  - Chemotherapeutic drug level above therapeutic [Recovering/Resolving]
  - Cell death [Recovering/Resolving]
  - Acute kidney injury [Not Recovered/Not Resolved]

NARRATIVE: CASE EVENT DATE: 20190513
